FAERS Safety Report 5531165-6 (Version None)
Quarter: 2007Q4

REPORT INFORMATION
  Report Type: 
  Country: None (occurrence: None)
  Receive Date: 20071130
  Receipt Date: 20071120
  Transmission Date: 20080405
  Serious: Yes (Other)
  Sender: FDA-Public Use
  Company Number: US-PFIZER INC-2007099337

PATIENT
  Sex: Female
  Weight: 70.454 kg

DRUGS (5)
  1. CHANTIX [Suspect]
     Indication: SMOKING CESSATION THERAPY
  2. ATIVAN [Concomitant]
  3. ULTRAM [Concomitant]
  4. ALL OTHER THERAPEUTIC PRODUCTS [Concomitant]
     Indication: THYROID DISORDER
  5. METOPROLOL [Concomitant]
     Indication: HYPERTENSION

REACTIONS (3)
  - MEMORY IMPAIRMENT [None]
  - NAUSEA [None]
  - VOMITING [None]
